FAERS Safety Report 13996507 (Version 1)
Quarter: 2017Q3

REPORT INFORMATION
  Report Type: Spontaneous
  Country: US (occurrence: US)
  Receive Date: 20170921
  Receipt Date: 20170921
  Transmission Date: 20171128
  Serious: No
  Sender: FDA-Public Use
  Company Number: US-TEVA-732542ACC

PATIENT
  Age: 82 Year
  Sex: Male
  Weight: 93 kg

DRUGS (1)
  1. CARVEDILOL. [Suspect]
     Active Substance: CARVEDILOL
     Indication: ATRIAL FIBRILLATION

REACTIONS (6)
  - Oedema peripheral [Unknown]
  - Epistaxis [Unknown]
  - Rash [Unknown]
  - Fatigue [Unknown]
  - Musculoskeletal stiffness [Unknown]
  - Muscle spasms [Unknown]

NARRATIVE: CASE EVENT DATE: 201611
